FAERS Safety Report 10206591 (Version 2)
Quarter: 2019Q3

REPORT INFORMATION
  Report Type: Report from Study
  Country: US (occurrence: US)
  Receive Date: 20140530
  Receipt Date: 20190819
  Transmission Date: 20191004
  Serious: Yes (Hospitalization, Other)
  Sender: FDA-Public Use
  Company Number: US-SA-2014SA069435

PATIENT
  Age: 65 Year
  Sex: Female

DRUGS (2)
  1. AGALSIDASE BETA [Suspect]
     Active Substance: AGALSIDASE BETA
     Indication: FABRY^S DISEASE
     Dosage: 80 MG, QOW
     Route: 041
  2. AGALSIDASE BETA [Suspect]
     Active Substance: AGALSIDASE BETA
     Dosage: 80 UNK, FREQUENCY Q2
     Route: 041
     Dates: start: 20181116

REACTIONS (4)
  - Heart valve incompetence [Unknown]
  - Myocardial necrosis marker increased [Unknown]
  - Poor venous access [Unknown]
  - Diverticulitis [Unknown]

NARRATIVE: CASE EVENT DATE: 20190812
